FAERS Safety Report 7315473-4 (Version None)
Quarter: 2011Q1

REPORT INFORMATION
  Report Type: 
  Country: None (occurrence: None)
  Receive Date: 20110225
  Receipt Date: 20110222
  Transmission Date: 20110831
  Serious: Yes (Hospitalization)
  Sender: FDA-Public Use
  Company Number: US-PFIZER INC-2011038448

PATIENT
  Age: 67 Year
  Sex: Male
  Weight: 83 kg

DRUGS (7)
  1. DEXAMETHASONE SODIUM PHOSPHATE [Suspect]
     Indication: MULTIPLE MYELOMA
     Dosage: 20 MG, CYCLIC ON DAYS 1,2,4,5,8,9,11 AND 12
     Route: 048
     Dates: start: 20110117, end: 20110128
  2. FUROSEMIDE [Suspect]
     Dosage: UNKNOWN
  3. LENALIDOMIDE [Suspect]
     Indication: MULTIPLE MYELOMA
     Dosage: 25 MG, CYCLIC ON DAYS 1-14
     Route: 048
     Dates: start: 20110117, end: 20110130
  4. LISINOPRIL [Suspect]
     Dosage: UNKNOWN
  5. AMLODIPINE BESYLATE [Suspect]
     Dosage: UNK
  6. VELCADE [Suspect]
     Indication: MULTIPLE MYELOMA
     Dosage: 1.3 MG/M2, DAYS 1,4,8 AND 11
     Route: 040
     Dates: start: 20110117, end: 20110127
  7. ASPIRIN [Concomitant]
     Dosage: UNK
     Dates: start: 20110117

REACTIONS (3)
  - ORTHOSTATIC HYPOTENSION [None]
  - SYNCOPE [None]
  - DEHYDRATION [None]
